FAERS Safety Report 8206041-0 (Version None)
Quarter: 2012Q1

REPORT INFORMATION
  Report Type: 
  Country: None (occurrence: None)
  Receive Date: 20120313
  Receipt Date: 20120227
  Transmission Date: 20120608
  Serious: Yes (Hospitalization)
  Sender: FDA-Public Use
  Company Number: CA-WATSON-2012-04019

PATIENT
  Age: 58 Year
  Sex: Female

DRUGS (6)
  1. VALPROATE SODIUM [Suspect]
     Dosage: MISTAKENLY LOWERED DOSE DAY 16 AFTER ADMISSION
     Route: 065
  2. VALPROATE SODIUM [Suspect]
     Indication: CONVULSION
     Dosage: DAY 47 AFTER ADMISSION
     Route: 065
  3. VALPROATE SODIUM [Suspect]
     Dosage: X 3 YEARS PRIOR TO HOSPITALIZATION
     Route: 065
  4. VALPROATE SODIUM [Suspect]
     Dosage: STARTED DAY 5 OF ADMISSION
     Route: 065
  5. ERTAPENEM [Suspect]
  6. VALPROATE SODIUM [Suspect]
     Dosage: INCREASED DAY 18 AFTER ADMISSION
     Route: 065

REACTIONS (2)
  - DRUG LEVEL DECREASED [None]
  - DRUG INTERACTION [None]
